FAERS Safety Report 4429993-3 (Version None)
Quarter: 2004Q3

REPORT INFORMATION
  Report Type: 
  Country: None (occurrence: None)
  Receive Date: 20040817
  Receipt Date: 20040804
  Transmission Date: 20050211
  Serious: Yes (Hospitalization)
  Sender: FDA-Public Use
  Company Number: HQWYE996612JUL04

PATIENT
  Age: 4 Year
  Sex: Female
  Weight: 13.3 kg

DRUGS (21)
  1. RAPAMUNE [Suspect]
     Indication: IMMUNOSUPPRESSANT DRUG THERAPY
     Dosage: 0.5 MG 2X PER 1 DAY, INTRA-ABDOMINAL
     Dates: start: 20020507
  2. PREVACID [Concomitant]
  3. MIRAPEX ^BOEHRINGER INGELHEIM^ (PRAMIPEXOLE DIHYDROCHLORIDE) [Concomitant]
  4. PROGRAF [Concomitant]
  5. NORVASC [Concomitant]
  6. PREDNISONE [Concomitant]
  7. BACTROBAN (MUPIROCIN) [Concomitant]
  8. ZYRTEC [Concomitant]
  9. ERYTHROMYCIN [Concomitant]
  10. BACLOFEN [Concomitant]
  11. VALCYTE [Concomitant]
  12. CARAFATE [Concomitant]
  13. SENOKOT [Concomitant]
  14. REGLAN [Concomitant]
  15. HYDRALAZINE HCL TAB [Concomitant]
  16. BENADRYL [Concomitant]
  17. ZOFRAN [Concomitant]
  18. TYLENOL [Concomitant]
  19. XOPENEX [Concomitant]
  20. LACTULOSE [Concomitant]
  21. GLYCERIN (GLYCEROL) [Concomitant]

REACTIONS (7)
  - APHTHOUS STOMATITIS [None]
  - GASTRIC ULCER [None]
  - HAEMATOCHEZIA [None]
  - HAEMATOCRIT DECREASED [None]
  - LYMPHADENOPATHY [None]
  - LYMPHOPROLIFERATIVE DISORDER [None]
  - RECTAL HAEMORRHAGE [None]
